FAERS Safety Report 10047260 (Version 1)
Quarter: 2014Q1

REPORT INFORMATION
  Report Type: Spontaneous
  Country: US (occurrence: None)
  Receive Date: 20140328
  Receipt Date: 20140328
  Transmission Date: 20141002
  Serious: Yes (Hospitalization)
  Sender: FDA-Public Use
  Company Number: None

PATIENT
  Age: 56 Year
  Sex: Male
  Weight: 100 kg

DRUGS (7)
  1. CETUXIMAB (ERBITUX) (714692) [Suspect]
  2. ATIVAN [Concomitant]
  3. HYZAAR [Concomitant]
  4. VIBRAMYCIN [Concomitant]
  5. HYDROCODONE 10MG-ACETAMINOPHEN 325MG/15ML ORAL SOLUTION [Concomitant]
  6. PROCHLORPERAZINE MALEATE [Concomitant]
  7. SCOPOLAMINE PATCH [Concomitant]

REACTIONS (3)
  - Dysphagia [None]
  - Dehydration [None]
  - Asthenia [None]
